FAERS Safety Report 14024938 (Version 1)
Quarter: 2017Q3

REPORT INFORMATION
  Report Type: Spontaneous
  Country: US (occurrence: US)
  Receive Date: 20170929
  Receipt Date: 20170929
  Transmission Date: 20171128
  Serious: No
  Sender: FDA-Public Use
  Company Number: US-TAKEDA-2017TUS019970

PATIENT
  Age: 32 Year
  Sex: Female

DRUGS (1)
  1. COLCRYS [Suspect]
     Active Substance: COLCHICINE
     Indication: AUTOINFLAMMATORY DISEASE
     Dosage: 0.6 MG, BID
     Route: 048
     Dates: start: 201701

REACTIONS (2)
  - No adverse event [Unknown]
  - Off label use [Unknown]
